FAERS Safety Report 8537099-7 (Version None)
Quarter: 2012Q3

REPORT INFORMATION
  Report Type: 
  Country: None (occurrence: None)
  Receive Date: 20120725
  Receipt Date: 20120720
  Transmission Date: 20120928
  Serious: Yes (Death, Life-Threatening, Other)
  Sender: FDA-Public Use
  Company Number: JP-PFIZER INC-2012120548

PATIENT
  Age: 42 Year
  Sex: Female
  Weight: 46 kg

DRUGS (6)
  1. LOXONIN [Concomitant]
     Dosage: 60 MG, 2X/DAY
     Route: 048
  2. XALKORI [Suspect]
     Indication: NON-SMALL CELL LUNG CANCER
     Dosage: 250 MG, 2X/DAY
     Route: 048
     Dates: start: 20120511, end: 20120515
  3. LANSOPRAZOLE [Concomitant]
     Dosage: 30 MG, 1X/DAY
     Route: 048
     Dates: end: 20120514
  4. ZYPREXA [Concomitant]
     Dosage: 2.5 MG, 3X/DAY
     Route: 048
     Dates: end: 20120523
  5. MS CONTIN [Concomitant]
     Dosage: 10 MG, 2X/DAY
     Route: 048
     Dates: end: 20120523
  6. LANSOPRAZOLE [Concomitant]
     Dosage: 1 DF, 1X/DAY
     Route: 042
     Dates: start: 20120515, end: 20120524

REACTIONS (3)
  - INTERSTITIAL LUNG DISEASE [None]
  - DISEASE PROGRESSION [None]
  - NON-SMALL CELL LUNG CANCER [None]
